FAERS Safety Report 8791302 (Version 2)
Quarter: 2012Q4

REPORT INFORMATION
  Report Type: Spontaneous
  Country: CN (occurrence: None)
  Receive Date: 20120912
  Receipt Date: 20121002
  Transmission Date: 20130627
  Serious: Yes (Hospitalization)
  Sender: FDA-Public Use
  Company Number: B0828862A

PATIENT
  Age: 75 Year
  Sex: Female

DRUGS (11)
  1. PAXIL [Suspect]
     Indication: ANXIETY
  2. PAXIL [Suspect]
  3. SIMVASTATIN [Suspect]
     Indication: HYPERLIPIDAEMIA
  4. ASPIRIN [Concomitant]
  5. AMLODIPINE [Concomitant]
  6. GLICLAZIDE [Concomitant]
  7. CLOPIDOGREL [Concomitant]
  8. LOW MW HEPARIN [Concomitant]
  9. BISOPROLOL FUMARATE [Concomitant]
  10. DILTIAZEM HYDROCHLORIDE [Concomitant]
  11. ISOSORBIDE MONONITRATE [Concomitant]

REACTIONS (8)
  - Liver injury [None]
  - Myalgia [None]
  - Asthenia [None]
  - Decreased activity [None]
  - Back pain [None]
  - Pain in extremity [None]
  - Myopathy [None]
  - Drug interaction [None]
